FAERS Safety Report 8223565-0 (Version None)
Quarter: 2012Q1

REPORT INFORMATION
  Report Type: 
  Country: None (occurrence: None)
  Receive Date: 20120321
  Receipt Date: 20120317
  Transmission Date: 20120608
  Serious: No
  Sender: FDA-Public Use
  Company Number: US-PFIZER INC-2011283279

PATIENT
  Sex: Female

DRUGS (1)
  1. IBUPROFEN (ADVIL) [Suspect]
     Indication: ARTHRALGIA
     Dosage: 200 MG, AS NEEDED
     Route: 048
     Dates: start: 20050101

REACTIONS (1)
  - PARAESTHESIA ORAL [None]
